FAERS Safety Report 23480093 (Version 7)
Quarter: 2025Q1

REPORT INFORMATION
  Report Type: Spontaneous
  Country: US (occurrence: US)
  Receive Date: 20240205
  Receipt Date: 20250208
  Transmission Date: 20250408
  Serious: Yes (Other)
  Sender: AVEO PHARMACEUTICALS
  Company Number: US-AVEO PHARMACEUTICALS, INC.-2024-AVEO-US000087

PATIENT

DRUGS (17)
  1. FOTIVDA [Suspect]
     Active Substance: TIVOZANIB HYDROCHLORIDE
     Indication: Renal cell carcinoma
     Dosage: 1.34 MG, DAILY FOR 21 DAYS WITH 7 DAYS OFF (28-DAY CYCLE)
     Route: 048
     Dates: start: 20231006
  2. CLOBETASOL [Concomitant]
     Active Substance: CLOBETASOL
  3. COLCHICINE [Concomitant]
     Active Substance: COLCHICINE
  4. LUNESTA [Concomitant]
     Active Substance: ESZOPICLONE
  5. NEURONTIN [Concomitant]
     Active Substance: GABAPENTIN
  6. NORCO [Concomitant]
     Active Substance: ACETAMINOPHEN\HYDROCODONE BITARTRATE
  7. NIZORAL [Concomitant]
     Active Substance: KETOCONAZOLE
  8. CULTURELLE [Concomitant]
     Active Substance: LACTOBACILLUS RHAMNOSUS
  9. LEVEMIR [Concomitant]
     Active Substance: INSULIN DETEMIR
  10. SYNTHROID [Concomitant]
     Active Substance: LEVOTHYROXINE SODIUM
  11. IMODIUM [Concomitant]
     Active Substance: LOPERAMIDE HYDROCHLORIDE
  12. MEGACE [Concomitant]
     Active Substance: MEGESTROL ACETATE
  13. PRILOSEC [Concomitant]
     Active Substance: OMEPRAZOLE MAGNESIUM
  14. ZOFRAN [Concomitant]
     Active Substance: ONDANSETRON HYDROCHLORIDE
  15. UREA [Concomitant]
     Active Substance: UREA
  16. VALTREX [Concomitant]
     Active Substance: VALACYCLOVIR HYDROCHLORIDE
  17. CABOMETYX [Concomitant]
     Active Substance: CABOZANTINIB S-MALATE

REACTIONS (8)
  - Bile duct stenosis [Unknown]
  - Procedural complication [Unknown]
  - Skin lesion [Unknown]
  - Hernia [Unknown]
  - Nervousness [Unknown]
  - Pain [Unknown]
  - Skin discolouration [Unknown]
  - Dry skin [Unknown]
